FAERS Safety Report 17070048 (Version 1)
Quarter: 2019Q4

REPORT INFORMATION
  Report Type: Spontaneous
  Country: HU (occurrence: HU)
  Receive Date: 20191125
  Receipt Date: 20191125
  Transmission Date: 20200122
  Serious: Yes (Hospitalization)
  Sender: FDA-Public Use
  Company Number: HU-ROCHE-2435425

PATIENT
  Age: 29 Year
  Sex: Female
  Weight: 68 kg

DRUGS (5)
  1. ROACTEMRA [Suspect]
     Active Substance: TOCILIZUMAB
     Indication: RHEUMATOID ARTHRITIS
     Route: 042
     Dates: start: 20120209, end: 20150901
  2. SP 54 [Concomitant]
     Active Substance: PENTOSAN POLYSULFATE SODIUM
     Dosage: 3X4
     Route: 065
  3. ENAP [ENALAPRILAT] [Concomitant]
     Route: 065
  4. ROACTEMRA [Suspect]
     Active Substance: TOCILIZUMAB
     Indication: RHEUMATOID ARTHRITIS
     Route: 058
     Dates: start: 20150901, end: 20190901
  5. LEFLUNOMID SANDOZ [Concomitant]
     Route: 065

REACTIONS (5)
  - Swelling face [Recovered/Resolved]
  - Pregnancy [Unknown]
  - Haematoma [Recovered/Resolved]
  - Periorbital swelling [Recovered/Resolved]
  - Pruritus [Recovered/Resolved]

NARRATIVE: CASE EVENT DATE: 201908
